FAERS Safety Report 6595773-6 (Version None)
Quarter: 2010Q1

REPORT INFORMATION
  Report Type: 
  Country: None (occurrence: None)
  Receive Date: 20100223
  Receipt Date: 20100105
  Transmission Date: 20100710
  Serious: Yes (Death)
  Sender: FDA-Public Use
  Company Number: US-TYCO HEALTHCARE/MALLINCKRODT-T201000486

PATIENT
  Age: 40 Year
  Sex: Female

DRUGS (6)
  1. ACETAMINOPHEN AND HYDROCODONE BITARTRATE [Suspect]
     Route: 048
  2. TEMAZEPAM [Suspect]
     Route: 048
  3. DILTIAZEM [Suspect]
     Route: 048
  4. WARFARIN SODIUM [Suspect]
     Route: 048
  5. METOCLOPRAMIDE HYDROCHLORIDE [Suspect]
     Route: 048
  6. MIRTAZAPINE [Suspect]
     Route: 048

REACTIONS (1)
  - DEATH [None]
